FAERS Safety Report 18407047 (Version 2)
Quarter: 2020Q4

REPORT INFORMATION
  Report Type: Not Available
  Country: US (occurrence: US)
  Receive Date: 20201021
  Receipt Date: 20201111
  Transmission Date: 20210114
  Serious: No
  Sender: FDA-Public Use
  Company Number: US-NEUROCRINE BIOSCIENCES INC.-2020NBI03745

PATIENT
  Age: 72 Year
  Sex: Male

DRUGS (6)
  1. LATUDA [Concomitant]
     Active Substance: LURASIDONE HYDROCHLORIDE
  2. BUPROPION. [Concomitant]
     Active Substance: BUPROPION
  3. LEXAPRO [Concomitant]
     Active Substance: ESCITALOPRAM OXALATE
  4. TRAZODONE [Concomitant]
     Active Substance: TRAZODONE HYDROCHLORIDE
  5. INGREZZA [Suspect]
     Active Substance: VALBENAZINE
     Route: 048
     Dates: start: 20200828, end: 2020
  6. INGREZZA [Suspect]
     Active Substance: VALBENAZINE
     Indication: TARDIVE DYSKINESIA
     Route: 048
     Dates: start: 20200820, end: 20200827

REACTIONS (3)
  - Suicidal ideation [Recovered/Resolved]
  - Abnormal dreams [Recovered/Resolved]
  - Muscle twitching [Recovered/Resolved]

NARRATIVE: CASE EVENT DATE: 2020
